FAERS Safety Report 9916523 (Version 1)
Quarter: 2014Q1

REPORT INFORMATION
  Report Type: Spontaneous
  Country: JP (occurrence: None)
  Receive Date: 20140219
  Receipt Date: 20140219
  Transmission Date: 20141002
  Serious: Yes (Other)
  Sender: FDA-Public Use
  Company Number: FK201400513

PATIENT
  Age: 6 Decade
  Sex: Male

DRUGS (4)
  1. FLUOROURACIL [Suspect]
     Indication: COLORECTAL CANCER METASTATIC
  2. OXALIPLATIN [Concomitant]
  3. LEUCOVORIN (FOLINIC ACID) [Concomitant]
  4. CAPECITABINE [Concomitant]

REACTIONS (1)
  - Hyperammonaemic encephalopathy [None]
